FAERS Safety Report 6014630-7 (Version None)
Quarter: 2008Q4

REPORT INFORMATION
  Report Type: 
  Country: None (occurrence: None)
  Receive Date: 20081219
  Receipt Date: 20081201
  Transmission Date: 20090506
  Serious: No
  Sender: FDA-Public Use
  Company Number: A0749855A

PATIENT
  Age: 67 Year
  Sex: Male

DRUGS (18)
  1. AVODART [Suspect]
     Indication: DRUG USE FOR UNKNOWN INDICATION
     Dosage: .5MG PER DAY
     Route: 048
     Dates: start: 20080301
  2. FLOMAX [Suspect]
     Dosage: .4MG PER DAY
     Dates: start: 20080301
  3. AMLODIPINE [Concomitant]
  4. ASPIRIN [Concomitant]
  5. BENAZEPRIL HYDROCHLORIDE [Concomitant]
  6. CLONIDINE [Concomitant]
  7. COZAAR [Concomitant]
  8. HUMALOG [Concomitant]
  9. LANTUS [Concomitant]
  10. LABETALOL HCL [Concomitant]
  11. METFORMIN HCL [Concomitant]
  12. NAPROXEN [Concomitant]
  13. NEXIUM [Concomitant]
  14. TORSEMIDE [Concomitant]
  15. ULTRAM [Concomitant]
  16. VYTORIN [Concomitant]
  17. VITAMINS [Concomitant]
  18. FOLIC ACID [Concomitant]

REACTIONS (2)
  - PRODUCT QUALITY ISSUE [None]
  - PROSTATIC SPECIFIC ANTIGEN INCREASED [None]
